FAERS Safety Report 5067526-1 (Version None)
Quarter: 2006Q3

REPORT INFORMATION
  Report Type: 
  Country: None (occurrence: None)
  Receive Date: 20060731
  Receipt Date: 20060713
  Transmission Date: 20061208
  Serious: Yes (Other)
  Sender: FDA-Public Use
  Company Number: US_010259887

PATIENT
  Age: 68 Year
  Sex: Female
  Weight: 48.1 kg

DRUGS (7)
  1. HUMALOG MIX 75/25 [Suspect]
     Indication: DIABETES MELLITUS
     Dosage: 14 U, DAILY (1/D), SUBCUTANEOUS
     Route: 058
     Dates: start: 20010127
  2. ACTOS [Concomitant]
  3. LIPITOR [Concomitant]
  4. RENAGEL [Concomitant]
  5. NORVASC [Concomitant]
  6. LEVOXYL [Concomitant]
  7. ATENOLOL [Concomitant]

REACTIONS (6)
  - BLOOD GLUCOSE INCREASED [None]
  - DEVICE FAILURE [None]
  - KIDNEY FIBROSIS [None]
  - PERITONEAL DIALYSIS [None]
  - PHARMACEUTICAL PRODUCT COMPLAINT [None]
  - RENAL FAILURE [None]
